FAERS Safety Report 9957065 (Version 1)
Quarter: 2014Q1

REPORT INFORMATION
  Report Type: Report from Study
  Country: US (occurrence: US)
  Receive Date: 20140304
  Receipt Date: 20140304
  Transmission Date: 20141002
  Serious: No
  Sender: FDA-Public Use
  Company Number: US-ABBVIE-13P-163-1099859-00

PATIENT
  Age: 53 Year
  Sex: Female
  Weight: 66.74 kg

DRUGS (6)
  1. HUMIRA [Suspect]
     Indication: RHEUMATOID ARTHRITIS
     Route: 058
     Dates: start: 2011
  2. METHOTREXATE [Concomitant]
     Indication: RHEUMATOID ARTHRITIS
  3. TRAMADOL [Concomitant]
     Indication: RHEUMATOID ARTHRITIS
  4. ETODOLAC [Concomitant]
     Indication: RHEUMATOID ARTHRITIS
  5. TIZANIDINA [Concomitant]
     Indication: MYALGIA
  6. PREDNISONE [Concomitant]
     Indication: RHEUMATOID ARTHRITIS

REACTIONS (2)
  - Poor quality drug administered [Unknown]
  - Incorrect product storage [Unknown]
